FAERS Safety Report 6985754-2 (Version None)
Quarter: 2010Q3

REPORT INFORMATION
  Report Type: 
  Country: None (occurrence: None)
  Receive Date: 20100913
  Receipt Date: 20100830
  Transmission Date: 20110219
  Serious: No
  Sender: FDA-Public Use
  Company Number: SPI201000233

PATIENT
  Age: 59 Year
  Sex: Female
  Weight: 72.6 kg

DRUGS (4)
  1. AMITIZA [Suspect]
     Indication: CONSTIPATION
     Dosage: 8 MCG, QD, ORAL; 8 MCG, BID, ORAL
     Route: 048
     Dates: start: 20100827, end: 20100829
  2. AMITIZA [Suspect]
     Indication: CONSTIPATION
     Dosage: 8 MCG, QD, ORAL; 8 MCG, BID, ORAL
     Route: 048
     Dates: start: 20100830
  3. OXYCODONE HYDROCHLORIDE W/PARACETAMOL (OXYCODONE HYDROCHLORIDE, PARACE [Concomitant]
  4. SYNTHROID [Concomitant]

REACTIONS (5)
  - ABDOMINAL DISTENSION [None]
  - ABDOMINAL PAIN UPPER [None]
  - CHEST PAIN [None]
  - FLATULENCE [None]
  - RECTAL TENESMUS [None]
